FAERS Safety Report 8058513-X (Version None)
Quarter: 2012Q1

REPORT INFORMATION
  Report Type: 
  Country: None (occurrence: None)
  Receive Date: 20120120
  Receipt Date: 20120116
  Transmission Date: 20120608
  Serious: Yes (Death)
  Sender: FDA-Public Use
  Company Number: US-ROXANE LABORATORIES, INC.-2012-EU-00310GD

PATIENT
  Age: 21 Year
  Sex: Male

DRUGS (4)
  1. ALPRAZOLAM [Suspect]
     Dosage: ROUTE: INGESTION + PARENTERAL
  2. MORPHINE [Suspect]
     Dosage: ROUTE: INGESTION + PARENTERAL
  3. AMITRIPTYLINE HCL [Suspect]
     Dosage: ROUTE: INGESTION + PARENTERAL
  4. DIAZEPAM [Suspect]
     Dosage: ROUTE: INGESTION + PARENTERAL

REACTIONS (1)
  - DEATH [None]
